FAERS Safety Report 7993794-X (Version None)
Quarter: 2011Q4

REPORT INFORMATION
  Report Type: 
  Country: None (occurrence: None)
  Receive Date: 20111220
  Receipt Date: 20111209
  Transmission Date: 20120403
  Serious: No
  Sender: FDA-Public Use
  Company Number: US-BIOGENIDEC-2011BI047036

PATIENT
  Age: 35 Year
  Sex: Female

DRUGS (4)
  1. TYSABRI [Suspect]
     Indication: MULTIPLE SCLEROSIS
     Route: 042
     Dates: start: 20111017
  2. AVONEX [Concomitant]
     Route: 030
     Dates: start: 19960708, end: 20020101
  3. AVONEX [Concomitant]
     Indication: MULTIPLE SCLEROSIS
     Route: 030
     Dates: start: 20080601
  4. TYSABRI [Suspect]
     Route: 042
     Dates: start: 20080725, end: 20110228

REACTIONS (2)
  - MULTIPLE SCLEROSIS RELAPSE [None]
  - ASTHENIA [None]
